FAERS Safety Report 4635580-4 (Version None)
Quarter: 2005Q2

REPORT INFORMATION
  Report Type: 
  Country: None (occurrence: None)
  Receive Date: 20050414
  Receipt Date: 20050408
  Transmission Date: 20051028
  Serious: Yes (Disabling)
  Sender: FDA-Public Use
  Company Number: DK-MERCK-0504DNK00010

PATIENT
  Age: 74 Year
  Sex: Female

DRUGS (5)
  1. VIOXX [Suspect]
     Indication: RHEUMATOID ARTHRITIS
     Route: 048
     Dates: start: 20020429, end: 20031125
  2. VIOXX [Suspect]
     Route: 048
     Dates: start: 20040419, end: 20040930
  3. FOSAMAX [Concomitant]
     Route: 048
     Dates: start: 20031113
  4. TOLTERODINE TARTRATE [Concomitant]
     Route: 048
     Dates: start: 20020304
  5. METHOTREXATE [Concomitant]
     Route: 048
     Dates: start: 20020529

REACTIONS (1)
  - DEMENTIA [None]
